FAERS Safety Report 18413392 (Version 1)
Quarter: 2020Q4

REPORT INFORMATION
  Report Type: Other
  Country: TW (occurrence: TW)
  Receive Date: 20201022
  Receipt Date: 20201022
  Transmission Date: 20210114
  Serious: Yes (Death)
  Sender: FDA-Public Use
  Company Number: TW-ROCHE-2696735

PATIENT

DRUGS (15)
  1. VINCRISTINE [Suspect]
     Active Substance: VINCRISTINE
     Indication: MARGINAL ZONE LYMPHOMA
  2. PREDNISOLONE. [Suspect]
     Active Substance: PREDNISOLONE
     Indication: DIFFUSE LARGE B-CELL LYMPHOMA
  3. ADRIAMYCIN [Suspect]
     Active Substance: DOXORUBICIN HYDROCHLORIDE
     Indication: B-CELL LYMPHOMA
  4. RITUXIMAB. [Suspect]
     Active Substance: RITUXIMAB
     Indication: DIFFUSE LARGE B-CELL LYMPHOMA
     Dosage: ON DAY 1
     Route: 065
  5. ADRIAMYCIN [Suspect]
     Active Substance: DOXORUBICIN HYDROCHLORIDE
     Indication: MARGINAL ZONE LYMPHOMA
     Dosage: IN CHOP REGIMEN 50MG/M2 OR IN MINICHOP REGIMEN 25 MG/M2
     Route: 065
  6. PREDNISOLONE. [Suspect]
     Active Substance: PREDNISOLONE
     Indication: B-CELL LYMPHOMA
  7. RITUXIMAB. [Suspect]
     Active Substance: RITUXIMAB
     Indication: B-CELL LYMPHOMA
  8. CYCLOPHOSPHAMIDE. [Suspect]
     Active Substance: CYCLOPHOSPHAMIDE
     Indication: DIFFUSE LARGE B-CELL LYMPHOMA
     Dosage: CHOP REGIMEN (CYCLOPHOSPHAMIDE 750 MG/M2) OR MINICHOP REGIMEN (CYCLOPHOSPHAMIDE 400 MG/M2 ON DAY 1)
     Route: 065
  9. VINCRISTINE [Suspect]
     Active Substance: VINCRISTINE
     Indication: DIFFUSE LARGE B-CELL LYMPHOMA
     Dosage: IN CHOP REGIMEN 1.4 MG/M2 [MAXIMAL DOSE: 2 MG) OR IN MINICHOP REGIMEN 1 MG
     Route: 065
  10. CYCLOPHOSPHAMIDE. [Suspect]
     Active Substance: CYCLOPHOSPHAMIDE
     Indication: B-CELL LYMPHOMA
  11. CYCLOPHOSPHAMIDE. [Suspect]
     Active Substance: CYCLOPHOSPHAMIDE
     Indication: MARGINAL ZONE LYMPHOMA
  12. PREDNISOLONE. [Suspect]
     Active Substance: PREDNISOLONE
     Indication: MARGINAL ZONE LYMPHOMA
     Route: 065
  13. RITUXIMAB. [Suspect]
     Active Substance: RITUXIMAB
     Indication: MARGINAL ZONE LYMPHOMA
  14. ADRIAMYCIN [Suspect]
     Active Substance: DOXORUBICIN HYDROCHLORIDE
     Indication: DIFFUSE LARGE B-CELL LYMPHOMA
  15. VINCRISTINE [Suspect]
     Active Substance: VINCRISTINE
     Indication: B-CELL LYMPHOMA

REACTIONS (2)
  - Sepsis [Fatal]
  - Tumour lysis syndrome [Fatal]
